FAERS Safety Report 20322110 (Version 1)
Quarter: 2022Q1

REPORT INFORMATION
  Report Type: Spontaneous
  Country: CN (occurrence: CN)
  Receive Date: 20220111
  Receipt Date: 20220111
  Transmission Date: 20220424
  Serious: Yes (Life-Threatening, Other)
  Sender: FDA-Public Use
  Company Number: CN-PFIZER INC-202101883187

PATIENT
  Age: 52 Year
  Sex: Male
  Weight: 72 kg

DRUGS (6)
  1. EPIRUBICIN HYDROCHLORIDE [Suspect]
     Active Substance: EPIRUBICIN HYDROCHLORIDE
     Indication: B-cell lymphoma
     Dosage: 25 MG, 1X/DAY
     Route: 041
     Dates: start: 20211030, end: 20211102
  2. ETOPOSIDE [Suspect]
     Active Substance: ETOPOSIDE
     Indication: B-cell lymphoma
     Dosage: 0.08 G, 1X/DAY
     Route: 041
     Dates: start: 20211030, end: 20211102
  3. CYCLOPHOSPHAMIDE [Suspect]
     Active Substance: CYCLOPHOSPHAMIDE
     Indication: B-cell lymphoma
     Dosage: 1.2 G, 1X/DAY
     Route: 041
     Dates: start: 20211103, end: 20211103
  4. VINCRISTINE SULFATE [Suspect]
     Active Substance: VINCRISTINE SULFATE
     Indication: B-cell lymphoma
     Dosage: 0.5 G, 1X/DAY
     Route: 041
     Dates: start: 20211030, end: 20211102
  5. RITUXIMAB [Concomitant]
     Active Substance: RITUXIMAB
     Indication: Neoplasm
     Dosage: 700 MG
     Dates: start: 20211029
  6. PREDNISOLONE [Concomitant]
     Active Substance: PREDNISOLONE
     Indication: Neoplasm
     Dosage: 100 MG (D1-D4)
     Dates: start: 20211030, end: 20211102

REACTIONS (3)
  - Myelosuppression [Recovering/Resolving]
  - Granulocyte count decreased [Recovering/Resolving]
  - Pyrexia [Recovering/Resolving]

NARRATIVE: CASE EVENT DATE: 20211108
